FAERS Safety Report 6691568-3 (Version None)
Quarter: 2010Q2

REPORT INFORMATION
  Report Type: 
  Country: None (occurrence: None)
  Receive Date: 20100422
  Receipt Date: 20100302
  Transmission Date: 20101027
  Serious: No
  Sender: FDA-Public Use
  Company Number: CHPA2010JP02726

PATIENT

DRUGS (1)
  1. PRIVINA (NCH) [Suspect]
     Dosage: UNK, UNK

REACTIONS (1)
  - URINARY RETENTION [None]
